FAERS Safety Report 19472292 (Version 2)
Quarter: 2021Q3

REPORT INFORMATION
  Report Type: Report from Study
  Country: KR (occurrence: KR)
  Receive Date: 20210629
  Receipt Date: 20210806
  Transmission Date: 20211014
  Serious: Yes (Hospitalization)
  Sender: FDA-Public Use
  Company Number: KR-MACROGENICS-2021000158

PATIENT
  Age: 71 Year
  Sex: Male
  Weight: 60.9 kg

DRUGS (6)
  1. TYLENOL 8HR [Concomitant]
     Active Substance: ACETAMINOPHEN
     Indication: PYREXIA
     Dosage: 650 MILLIGRAM, QD AS NECESSARY
     Route: 048
     Dates: start: 20210302, end: 20210628
  2. MARGETUXIMAB. [Suspect]
     Active Substance: MARGETUXIMAB
     Indication: GASTRIC CANCER
     Dosage: 15 MILLIGRAM/KILOGRAM, Q3WEEKS
     Route: 042
     Dates: start: 20210118, end: 20210118
  3. MARGETUXIMAB. [Suspect]
     Active Substance: MARGETUXIMAB
     Dosage: 15 MILLIGRAM/KILOGRAM, Q3WEEKS
     Route: 042
     Dates: start: 20210504, end: 20210504
  4. AMMONIUM CHLORIDE;CHLORPHENAMINE;DIHYDROCODEINE;METHYLEPHEDRINE [Concomitant]
     Indication: INFLUENZA LIKE ILLNESS
     Dosage: 20 MILLILITER, QD AS NECESSARY
     Route: 048
     Dates: start: 20210413, end: 20210628
  5. RETIFANLIMAB. [Suspect]
     Active Substance: RETIFANLIMAB
     Indication: GASTRIC CANCER
     Dosage: 375 MILLIGRAM, Q3WEEKS
     Route: 042
     Dates: start: 20210118, end: 20210118
  6. RETIFANLIMAB. [Suspect]
     Active Substance: RETIFANLIMAB
     Dosage: 375 MILLIGRAM, Q3WEEKS
     Route: 042
     Dates: start: 20210504, end: 20210504

REACTIONS (1)
  - Pneumonitis [Recovered/Resolved]

NARRATIVE: CASE EVENT DATE: 20210524
